FAERS Safety Report 6684907-0 (Version None)
Quarter: 2010Q2

REPORT INFORMATION
  Report Type: 
  Country: None (occurrence: None)
  Receive Date: 20100414
  Receipt Date: 20100405
  Transmission Date: 20101027
  Serious: Yes (Disabling, Other)
  Sender: FDA-Public Use
  Company Number: OSCN-PR-0607L-0194

PATIENT
  Age: 76 Year
  Sex: Male

DRUGS (5)
  1. OMNISCAN [Suspect]
     Indication: DRUG USE FOR UNKNOWN INDICATION
     Dosage: A TOTAL OF 49 ML WAS AMIDNISTERED
  2. DARBEPOETIN ALFA [Concomitant]
  3. METOPROLOL [Concomitant]
  4. HYDROMORPHONE HCL [Concomitant]
  5. PANTOPRAZOLE [Concomitant]

REACTIONS (2)
  - NEPHROGENIC SYSTEMIC FIBROSIS [None]
  - WALKING AID USER [None]
